FAERS Safety Report 9847064 (Version 5)
Quarter: 2014Q3

REPORT INFORMATION
  Report Type: Spontaneous
  Country: JP (occurrence: JP)
  Receive Date: 20140127
  Receipt Date: 20140821
  Transmission Date: 20150326
  Serious: Yes (Other)
  Sender: FDA-Public Use
  Company Number: JP-PFIZER INC-2014022993

PATIENT
  Age: 70 Year
  Sex: Male
  Weight: 45 kg

DRUGS (4)
  1. ALABEL [Concomitant]
     Active Substance: AMINOLEVULINIC ACID HYDROCHLORIDE
     Indication: PHOTODYNAMIC THERAPY
     Dosage: 20 MG/KG
     Route: 048
     Dates: start: 20131111
  2. ALEVIATIN [Concomitant]
     Active Substance: PHENYTOIN SODIUM
     Dosage: UNK
  3. FOSPHENYTOIN SODIUM. [Suspect]
     Active Substance: FOSPHENYTOIN SODIUM
     Dosage: UNK
  4. DEPAKENE [Concomitant]
     Active Substance: VALPROIC ACID
     Dosage: UNK

REACTIONS (1)
  - Epilepsy [Recovered/Resolved]

NARRATIVE: CASE EVENT DATE: 20131111
